FAERS Safety Report 9342620 (Version 2)
Quarter: 2013Q2

REPORT INFORMATION
  Report Type: Spontaneous
  Country: US (occurrence: US)
  Receive Date: 20130611
  Receipt Date: 20130628
  Transmission Date: 20140414
  Serious: Yes (Death)
  Sender: FDA-Public Use
  Company Number: US-GILEAD-2013-0075896

PATIENT
  Sex: Female

DRUGS (2)
  1. LETAIRIS [Suspect]
     Indication: PULMONARY HYPERTENSION
     Dosage: 10 MG, UNK
     Route: 048
     Dates: start: 20130505, end: 20130516
  2. LETAIRIS [Suspect]
     Indication: SCLERODERMA
     Dosage: 5 MG, UNK
     Route: 048
     Dates: start: 20130405, end: 20130505

REACTIONS (5)
  - Death [Fatal]
  - Periorbital contusion [Unknown]
  - Face oedema [Unknown]
  - Vomiting [Unknown]
  - Oedema peripheral [Unknown]
